FAERS Safety Report 19840140 (Version 1)
Quarter: 2021Q3

REPORT INFORMATION
  Report Type: Spontaneous
  Country: US (occurrence: US)
  Receive Date: 20210916
  Receipt Date: 20210916
  Transmission Date: 20211014
  Serious: No
  Sender: FDA-Public Use
  Company Number: US-ALLERGAN-2123709US

PATIENT
  Age: 51 Year
  Sex: Female

DRUGS (1)
  1. VANIQA [Suspect]
     Active Substance: EFLORNITHINE HYDROCHLORIDE
     Indication: HYPERTRICHOSIS
     Dosage: PEA SIZE AMOUNT ON FINGER AND PUT IT ON TWICE

REACTIONS (1)
  - Drug ineffective [Unknown]
